FAERS Safety Report 8009128-0 (Version None)
Quarter: 2011Q4

REPORT INFORMATION
  Report Type: 
  Country: None (occurrence: None)
  Receive Date: 20111227
  Receipt Date: 20111222
  Transmission Date: 20120403
  Serious: Yes (Disabling, Other)
  Sender: FDA-Public Use
  Company Number: US-ELI_LILLY_AND_COMPANY-US201112007061

PATIENT
  Sex: Female

DRUGS (2)
  1. HUMALOG [Suspect]
     Dosage: 130 IU, QD
     Route: 065
  2. HUMALOG [Suspect]
     Indication: DIABETES MELLITUS
     Dosage: 130 IU, QD
     Route: 065
     Dates: start: 19960101

REACTIONS (8)
  - CLAVICLE FRACTURE [None]
  - NEUROPATHY PERIPHERAL [None]
  - GAIT DISTURBANCE [None]
  - CATARACT OPERATION [None]
  - ACCIDENT [None]
  - BLINDNESS [None]
  - GLAUCOMA [None]
  - NEOPLASM MALIGNANT [None]
